FAERS Safety Report 19887492 (Version 2)
Quarter: 2022Q4

REPORT INFORMATION
  Report Type: Spontaneous
  Country: US (occurrence: US)
  Receive Date: 20210928
  Receipt Date: 20221018
  Transmission Date: 20230112
  Serious: No
  Sender: FDA-Public Use
  Company Number: US-CELLTRION INC.-2021US008789

PATIENT

DRUGS (3)
  1. INFLECTRA [Suspect]
     Active Substance: INFLIXIMAB-DYYB
     Indication: Crohn^s disease
     Dosage: 500 MG, INTRAVENOUSLY, EVERY 56 DAYS
     Route: 042
  2. INFLECTRA [Suspect]
     Active Substance: INFLIXIMAB-DYYB
     Dosage: 500MG BY INFUSION EVERY 56 DAYS
     Route: 042
  3. INFLECTRA [Suspect]
     Active Substance: INFLIXIMAB-DYYB
     Dosage: 100 UNK
     Route: 042

REACTIONS (5)
  - Product temperature excursion issue [Unknown]
  - Intercepted product storage error [Unknown]
  - Treatment delayed [Unknown]
  - Product packaging issue [Unknown]
  - Product storage error [Unknown]
